FAERS Safety Report 13830743 (Version 4)
Quarter: 2018Q1

REPORT INFORMATION
  Report Type: Spontaneous
  Country: US (occurrence: US)
  Receive Date: 20170803
  Receipt Date: 20180129
  Transmission Date: 20180508
  Serious: No
  Sender: FDA-Public Use
  Company Number: PHEH2017US022986

PATIENT
  Sex: Male

DRUGS (2)
  1. AFINITOR [Suspect]
     Active Substance: EVEROLIMUS
     Indication: PRODUCT USED FOR UNKNOWN INDICATION
     Route: 065
  2. LENVIMA [Suspect]
     Active Substance: LENVATINIB
     Indication: RENAL CELL CARCINOMA
     Dosage: 14 MG, QD
     Route: 048
     Dates: start: 20161109

REACTIONS (12)
  - Chills [Unknown]
  - Dehydration [Unknown]
  - Headache [Unknown]
  - Diarrhoea [Unknown]
  - Vision blurred [Unknown]
  - Bone pain [Unknown]
  - Dry eye [Unknown]
  - Myalgia [Unknown]
  - Vomiting [Unknown]
  - Gingival swelling [Recovering/Resolving]
  - Influenza like illness [Unknown]
  - Pyrexia [Unknown]
